FAERS Safety Report 6823815-9 (Version None)
Quarter: 2010Q3

REPORT INFORMATION
  Report Type: 
  Country: None (occurrence: None)
  Receive Date: 20100708
  Receipt Date: 20060916
  Transmission Date: 20110219
  Serious: Yes (Other)
  Sender: FDA-Public Use
  Company Number: US-PFIZER INC-2006102930

PATIENT
  Sex: Female
  Weight: 81.65 kg

DRUGS (1)
  1. CHANTIX [Suspect]
     Indication: SMOKING CESSATION THERAPY
     Route: 065
     Dates: start: 20060724, end: 20060817

REACTIONS (9)
  - CRYING [None]
  - DEPRESSION [None]
  - DISTURBANCE IN ATTENTION [None]
  - FLUID RETENTION [None]
  - STARING [None]
  - SUICIDAL IDEATION [None]
  - SWELLING [None]
  - THINKING ABNORMAL [None]
  - WEIGHT INCREASED [None]
